FAERS Safety Report 9206641 (Version 1)
Quarter: 2013Q2

REPORT INFORMATION
  Report Type: Report from Study
  Country: CA (occurrence: CA)
  Receive Date: 20130403
  Receipt Date: 20130403
  Transmission Date: 20140414
  Serious: Yes (Other)
  Sender: FDA-Public Use
  Company Number: CA-JNJFOC-20130316351

PATIENT
  Age: 55 Year
  Sex: Female
  Weight: 62.2 kg

DRUGS (9)
  1. REMICADE [Suspect]
     Indication: CROHN^S DISEASE
     Dosage: 11TH INFUSION
     Route: 042
     Dates: start: 20130129
  2. REMICADE [Suspect]
     Indication: CROHN^S DISEASE
     Route: 042
     Dates: start: 20110927
  3. VITAMINE B12 [Concomitant]
     Route: 065
  4. PANTOLOC [Concomitant]
     Route: 065
  5. IMURAN [Concomitant]
     Route: 065
  6. OXYCONTIN [Concomitant]
     Route: 065
  7. VITAMIN D [Concomitant]
     Route: 065
  8. CALCIUM [Concomitant]
     Route: 065
  9. AXERT [Concomitant]
     Route: 065

REACTIONS (4)
  - Vitamin D decreased [Recovering/Resolving]
  - Blood iron decreased [Recovering/Resolving]
  - Fibromyalgia [Recovering/Resolving]
  - Abdominal pain upper [Unknown]
